FAERS Safety Report 13054106 (Version 1)
Quarter: 2016Q4

REPORT INFORMATION
  Report Type: Spontaneous
  Country: US (occurrence: US)
  Receive Date: 20161222
  Receipt Date: 20161222
  Transmission Date: 20170207
  Serious: Yes (Life-Threatening, Hospitalization, Disabling)
  Sender: FDA-Public Use
  Company Number: None

PATIENT
  Age: 37 Year
  Sex: Female
  Weight: 78.75 kg

DRUGS (2)
  1. LUPRON DEPOT [Suspect]
     Active Substance: LEUPROLIDE ACETATE
     Indication: PROPHYLAXIS
     Dosage: ?          OTHER FREQUENCY:ONCE EVERY 3 MONTH;OTHER ROUTE:INJECTED?
     Dates: start: 20161125
  2. LUPRON DEPOT [Suspect]
     Active Substance: LEUPROLIDE ACETATE
     Indication: OVARIAN DISORDER
     Dosage: ?          OTHER FREQUENCY:ONCE EVERY 3 MONTH;OTHER ROUTE:INJECTED?
     Dates: start: 20161125

REACTIONS (3)
  - Vertebral artery thrombosis [None]
  - Embolic stroke [None]
  - Ischaemic stroke [None]

NARRATIVE: CASE EVENT DATE: 20161203
